FAERS Safety Report 19326662 (Version 2)
Quarter: 2024Q1

REPORT INFORMATION
  Report Type: Spontaneous
  Country: CA (occurrence: None)
  Receive Date: 20210528
  Receipt Date: 20240227
  Transmission Date: 20240409
  Serious: Yes (Hospitalization, Other)
  Sender: FDA-Public Use
  Company Number: 2020SF10425

PATIENT
  Age: 54 Year
  Sex: Female

DRUGS (9)
  1. QUETIAPINE [Suspect]
     Active Substance: QUETIAPINE
     Indication: Schizophrenia
     Route: 048
  2. CLONAZEPAM [Suspect]
     Active Substance: CLONAZEPAM
     Indication: Somnambulism
     Route: 065
  3. CLONAZEPAM [Suspect]
     Active Substance: CLONAZEPAM
     Indication: Akathisia
     Route: 065
  4. CLONAZEPAM [Suspect]
     Active Substance: CLONAZEPAM
     Indication: Somnambulism
     Route: 065
  5. CLONAZEPAM [Suspect]
     Active Substance: CLONAZEPAM
     Indication: Akathisia
     Route: 065
  6. DIAZEPAM [Suspect]
     Active Substance: DIAZEPAM
     Indication: Akathisia
     Route: 065
  7. PHENYTOIN [Suspect]
     Active Substance: PHENYTOIN
     Indication: Generalised tonic-clonic seizure
     Route: 065
  8. SERTRALINE HYDROCHLORIDE [Suspect]
     Active Substance: SERTRALINE HYDROCHLORIDE
     Indication: Depression
     Route: 065
  9. CLOZAPINE [Concomitant]
     Active Substance: CLOZAPINE

REACTIONS (18)
  - Dystonia [Recovered/Resolved]
  - Dysarthria [Unknown]
  - Oromandibular dystonia [Unknown]
  - Agranulocytosis [Recovered/Resolved]
  - Akathisia [Recovered/Resolved]
  - Somnambulism [Recovered/Resolved]
  - Trismus [Recovered/Resolved]
  - Hallucination [Recovered/Resolved]
  - Hypotension [Recovered/Resolved]
  - Paraesthesia [Recovered/Resolved]
  - Speech disorder [Recovered/Resolved]
  - Tardive dyskinesia [Recovered/Resolved]
  - Temporomandibular joint syndrome [Recovered/Resolved]
  - Muscle spasms [Unknown]
  - Incoherent [Unknown]
  - Pain in jaw [Unknown]
  - Pain [Recovered/Resolved]
  - Arthralgia [Unknown]
